FAERS Safety Report 16237074 (Version 2)
Quarter: 2019Q4

REPORT INFORMATION
  Report Type: Spontaneous
  Country: FR (occurrence: FR)
  Receive Date: 20190425
  Receipt Date: 20191105
  Transmission Date: 20200122
  Serious: Yes (Death, Other)
  Sender: FDA-Public Use
  Company Number: FR-FERRINGPH-2019FE02127

PATIENT
  Weight: 2.9 kg

DRUGS (1)
  1. PROPESS [Suspect]
     Active Substance: DINOPROSTONE
     Indication: LABOUR INDUCTION
     Dosage: UNK
     Route: 064

REACTIONS (2)
  - Foetal distress syndrome [Fatal]
  - Bradycardia neonatal [Fatal]

NARRATIVE: CASE EVENT DATE: 2016
